FAERS Safety Report 8564920 (Version 2)
Quarter: 2013Q2

REPORT INFORMATION
  Report Type: Spontaneous
  Country: US (occurrence: US)
  Receive Date: 20120516
  Receipt Date: 20130502
  Transmission Date: 20140414
  Serious: No
  Sender: FDA-Public Use
  Company Number: US-ALEXION-A201200221

PATIENT
  Age: 57 Year
  Sex: Female
  Weight: 54.42 kg

DRUGS (14)
  1. SOLIRIS 300MG [Suspect]
     Indication: PAROXYSMAL NOCTURNAL HAEMOGLOBINURIA
     Dosage: 600 MG, QW
     Route: 042
     Dates: start: 20100208, end: 201003
  2. SOLIRIS 300MG [Suspect]
     Dosage: 900 MG, Q2W
     Route: 042
     Dates: start: 201003
  3. FOLIC ACID [Concomitant]
     Dosage: 1 MG, BID
  4. CALCIUM [Concomitant]
  5. FOSAMAX [Concomitant]
     Indication: OSTEOPOROSIS
     Dosage: 70 MG, QW
  6. IMITREX [Concomitant]
     Indication: MIGRAINE
     Dosage: 15 MG, PRN
  7. CALCIUM + VITAMIN D [Concomitant]
     Dosage: 1 DF, QD 600/400
  8. VITAMIN D [Concomitant]
     Dosage: 1 DF, QD 2000 IU
  9. VITAMIN C [Concomitant]
     Dosage: 500 MG, QD
  10. IRON [Concomitant]
     Dosage: 1 DF, TID 325 TABLET
  11. FISH OIL [Concomitant]
     Dosage: 1000 MG, QD
  12. VITAMIN B [Concomitant]
     Dosage: 1000 MG, QD
  13. CIPRO [Concomitant]
  14. FERRITIN [Concomitant]
     Dosage: 1 TABLET DF, QD

REACTIONS (3)
  - Upper respiratory tract infection [Recovered/Resolved]
  - Viral infection [Recovered/Resolved]
  - Haemoglobin decreased [Unknown]
